FAERS Safety Report 23286889 (Version 1)
Quarter: 2023Q4

REPORT INFORMATION
  Report Type: Spontaneous
  Country: CH (occurrence: CH)
  Receive Date: 20231212
  Receipt Date: 20231212
  Transmission Date: 20240110
  Serious: Yes (Hospitalization, Other)
  Sender: FDA-Public Use
  Company Number: None

PATIENT
  Age: 88 Year
  Sex: Male
  Weight: 70.6 kg

DRUGS (34)
  1. ELIQUIS [Suspect]
     Active Substance: APIXABAN
     Indication: Atrial fibrillation
     Route: 048
     Dates: start: 202310, end: 20231026
  2. XARELTO [Suspect]
     Active Substance: RIVAROXABAN
     Indication: Atrial fibrillation
     Route: 048
     Dates: end: 20231011
  3. XARELTO [Suspect]
     Active Substance: RIVAROXABAN
     Dates: start: 20231017
  4. FEBUXOSTAT [Concomitant]
     Active Substance: FEBUXOSTAT
     Indication: Product used for unknown indication
     Route: 048
     Dates: end: 20231101
  5. ATORVASTATIN [Concomitant]
     Active Substance: ATORVASTATIN
     Indication: Product used for unknown indication
     Route: 048
  6. ATORVASTATIN [Concomitant]
     Active Substance: ATORVASTATIN
     Indication: Product used for unknown indication
     Route: 048
     Dates: start: 20231013, end: 20231018
  7. ATORVASTATIN [Concomitant]
     Active Substance: ATORVASTATIN
     Route: 048
     Dates: start: 20231101, end: 20231107
  8. ATORVASTATIN [Concomitant]
     Active Substance: ATORVASTATIN
     Indication: Product used for unknown indication
     Route: 048
  9. ELTROXIN LF [Concomitant]
     Indication: Product used for unknown indication
     Dosage: EUTHYROX? (ELTROXIN LF (LEVOTHYROXINE) 0.1 MG PO
     Route: 048
     Dates: end: 20231012
  10. ELTROXIN LF [Concomitant]
     Dosage: FROM 07.NOV.2023 AT 07:30 A.M.LEVOTHYROXINE) 100 MCG TABLETS P.O
     Route: 048
     Dates: start: 20231107
  11. ELTROXIN LF [Concomitant]
     Dosage: 1 PIECE DAILY AT 06:45 FROM 12.OCT.2023 TO 06.NOV.2023
     Route: 048
     Dates: start: 20231012, end: 20231106
  12. EUTHYROX [Concomitant]
     Active Substance: LEVOTHYROXINE SODIUM
     Indication: Product used for unknown indication
     Route: 048
     Dates: start: 20231012, end: 20231107
  13. PANTOPRAZOLE [Concomitant]
     Active Substance: PANTOPRAZOLE
     Indication: Product used for unknown indication
     Route: 048
  14. PANTOPRAZOLE SODIUM [Concomitant]
     Active Substance: PANTOPRAZOLE SODIUM
     Indication: Product used for unknown indication
     Route: 048
     Dates: start: 20231012
  15. PANTOPRAZOLE SODIUM [Concomitant]
     Active Substance: PANTOPRAZOLE SODIUM
     Route: 048
     Dates: start: 20231101, end: 20231107
  16. PANTOPRAZOLE SODIUM [Concomitant]
     Active Substance: PANTOPRAZOLE SODIUM
     Route: 048
  17. AMLODIPINE [Concomitant]
     Active Substance: AMLODIPINE BESYLATE
     Indication: Product used for unknown indication
     Route: 048
     Dates: end: 20231011
  18. AMLODIPINE [Concomitant]
     Active Substance: AMLODIPINE BESYLATE
     Indication: Product used for unknown indication
     Route: 048
     Dates: start: 20231012, end: 20231018
  19. ASACOL [Concomitant]
     Active Substance: MESALAMINE
     Indication: Product used for unknown indication
     Route: 048
     Dates: start: 20231011
  20. ASACOL [Concomitant]
     Active Substance: MESALAMINE
     Route: 048
  21. FOLIC ACID [Concomitant]
     Active Substance: FOLIC ACID
     Indication: Product used for unknown indication
     Route: 048
  22. MAGNESIOCARD ORANGE [Concomitant]
     Indication: Product used for unknown indication
     Route: 048
     Dates: start: 20231018
  23. CANDESARTAN [Concomitant]
     Active Substance: CANDESARTAN
     Indication: Product used for unknown indication
     Route: 048
     Dates: start: 20231018, end: 20231102
  24. CANDESARTAN [Concomitant]
     Active Substance: CANDESARTAN
     Route: 048
     Dates: start: 20231107
  25. PROCTO GLYVENOL [LIDOCAINE;TRIBENOSIDE] [Concomitant]
     Indication: Haemorrhoids
     Route: 061
  26. PROCTO GLYVENOL [LIDOCAINE;TRIBENOSIDE] [Concomitant]
     Dosage: AS NECESSARY
     Route: 061
     Dates: start: 20231101
  27. DAFALGAN [Concomitant]
     Active Substance: ACETAMINOPHEN
     Indication: Pain
     Dosage: AS NECESSARY
     Dates: start: 20231011
  28. METAMIZOLE [Concomitant]
     Active Substance: METAMIZOLE
     Indication: Product used for unknown indication
     Dosage: AS NECESSARY
     Dates: start: 20231013, end: 20231013
  29. LAXIPEG [Concomitant]
     Indication: Constipation
     Dosage: AS NECESSARY AROMA-FREE POUCH
     Route: 048
     Dates: start: 20231011
  30. LAXIPEG [Concomitant]
     Dosage: AS NECESSARY
     Route: 048
     Dates: start: 20231101, end: 20231107
  31. POLYETHYLENE GLYCOL 3350\POTASSIUM CHLORIDE\SODIUM BICARBONATE\SODIUM [Concomitant]
     Active Substance: POLYETHYLENE GLYCOL 3350\POTASSIUM CHLORIDE\SODIUM BICARBONATE\SODIUM CHLORIDE
     Indication: Constipation
     Dosage: AS NECESSARY
     Route: 048
  32. HERBALS\PLANTAGO OVATA LEAF [Concomitant]
     Active Substance: HERBALS\PLANTAGO OVATA LEAF
     Indication: Product used for unknown indication
     Dosage: AS NECESSARY
     Route: 048
     Dates: start: 20231011, end: 20231018
  33. VALVERDE SCHLAF [Concomitant]
     Indication: Sleep disorder
     Dosage: AS NECESSARY
     Route: 048
     Dates: start: 20231011
  34. TORSEMIDE [Concomitant]
     Active Substance: TORSEMIDE
     Indication: Product used for unknown indication

REACTIONS (2)
  - Lower gastrointestinal haemorrhage [Recovering/Resolving]
  - Normochromic normocytic anaemia [Recovering/Resolving]

NARRATIVE: CASE EVENT DATE: 20231030
